FAERS Safety Report 8433162-X (Version None)
Quarter: 2012Q2

REPORT INFORMATION
  Report Type: 
  Country: None (occurrence: None)
  Receive Date: 20120613
  Receipt Date: 20120607
  Transmission Date: 20120825
  Serious: Yes (Hospitalization)
  Sender: FDA-Public Use
  Company Number: US-GLAXOSMITHKLINE-A0883916A

PATIENT
  Age: 56 Year
  Sex: Male
  Weight: 73.2 kg

DRUGS (6)
  1. AMARYL [Concomitant]
  2. METFORMIN HCL [Concomitant]
  3. ALTACE [Concomitant]
  4. AVANDIA [Suspect]
     Indication: DIABETES MELLITUS
     Dosage: 8MG PER DAY
     Route: 048
     Dates: start: 20040201, end: 20080101
  5. LIPITOR [Concomitant]
  6. LANTUS [Concomitant]

REACTIONS (3)
  - HEART INJURY [None]
  - CEREBROVASCULAR ACCIDENT [None]
  - SUBDURAL HAEMATOMA [None]
